FAERS Safety Report 15828418 (Version 1)
Quarter: 2019Q1

REPORT INFORMATION
  Report Type: Spontaneous
  Country: US (occurrence: US)
  Receive Date: 20190115
  Receipt Date: 20190115
  Transmission Date: 20190417
  Serious: No
  Sender: FDA-Public Use
  Company Number: US-ALLERGAN-1806799US

PATIENT
  Sex: Female

DRUGS (5)
  1. TOBRAMYCIN. [Concomitant]
     Active Substance: TOBRAMYCIN
     Indication: DRY EYE
     Dosage: UNK
  2. TEGRETOL [Concomitant]
     Active Substance: CARBAMAZEPINE
     Indication: RESTLESS LEGS SYNDROME
     Dosage: UNK
  3. RESTORIL [Concomitant]
     Active Substance: TEMAZEPAM
     Indication: INSOMNIA
     Dosage: UNK
  4. DOXYCYCLINE. [Concomitant]
     Active Substance: DOXYCYCLINE
     Indication: DRY EYE
     Dosage: UNK
  5. RESTASIS [Suspect]
     Active Substance: CYCLOSPORINE
     Indication: DRY EYE
     Dosage: UNK UNK, BID
     Route: 047
     Dates: start: 20180125

REACTIONS (2)
  - Accidental exposure to product [Unknown]
  - Product container issue [Unknown]
